FAERS Safety Report 20045455 (Version 1)
Quarter: 2021Q4

REPORT INFORMATION
  Report Type: Spontaneous
  Country: US (occurrence: US)
  Receive Date: 20211108
  Receipt Date: 20211108
  Transmission Date: 20220303
  Serious: Yes (Other)
  Sender: FDA-Public Use
  Company Number: US-GILEAD-2021-0555092

PATIENT
  Age: 68 Year
  Sex: Male
  Weight: 85.9 kg

DRUGS (1)
  1. TECARTUS [Suspect]
     Active Substance: BREXUCABTAGENE AUTOLEUCEL
     Indication: Mantle cell lymphoma
     Dosage: UNK
     Route: 042
     Dates: start: 20210902, end: 20210902

REACTIONS (5)
  - Immune effector cell-associated neurotoxicity syndrome [Unknown]
  - Cytokine release syndrome [Unknown]
  - Malaise [Unknown]
  - Arrhythmia [Unknown]
  - Fatigue [Unknown]

NARRATIVE: CASE EVENT DATE: 20210908
